FAERS Safety Report 24655532 (Version 1)
Quarter: 2024Q4

REPORT INFORMATION
  Report Type: Spontaneous
  Country: US (occurrence: US)
  Receive Date: 20241123
  Receipt Date: 20241123
  Transmission Date: 20250114
  Serious: No
  Sender: ABBVIE
  Company Number: US-ABBVIE-6009282

PATIENT
  Age: 23 Year
  Sex: Male

DRUGS (1)
  1. RINVOQ [Suspect]
     Active Substance: UPADACITINIB
     Indication: Dermatitis atopic
     Route: 048
     Dates: start: 2022

REACTIONS (4)
  - Allergy to animal [Unknown]
  - Hypersensitivity [Unknown]
  - Seasonal allergy [Unknown]
  - Dust allergy [Unknown]

NARRATIVE: CASE EVENT DATE: 20240101
